FAERS Safety Report 4537194-3 (Version None)
Quarter: 2004Q4

REPORT INFORMATION
  Report Type: 
  Country: None (occurrence: None)
  Receive Date: 20041223
  Receipt Date: 20041214
  Transmission Date: 20050328
  Serious: Yes (Hospitalization)
  Sender: FDA-Public Use
  Company Number: PHFR2004GB04603

PATIENT
  Sex: Male

DRUGS (1)
  1. EXELON [Suspect]
     Indication: DEMENTIA ALZHEIMER'S TYPE
     Route: 048

REACTIONS (2)
  - BLOOD SODIUM INCREASED [None]
  - LOWER RESPIRATORY TRACT INFECTION [None]
